FAERS Safety Report 7338761-4 (Version None)
Quarter: 2011Q1

REPORT INFORMATION
  Report Type: 
  Country: None (occurrence: None)
  Receive Date: 20110308
  Receipt Date: 20110223
  Transmission Date: 20110831
  Serious: Yes (Other)
  Sender: FDA-Public Use
  Company Number: PHHY2011JP15793

PATIENT
  Age: 68 Year
  Sex: Female

DRUGS (1)
  1. NEORAL [Suspect]
     Indication: RHEUMATOID SCLERITIS
     Dosage: UNK
     Route: 048

REACTIONS (2)
  - HERPES OPHTHALMIC [None]
  - CORNEAL DISORDER [None]
